FAERS Safety Report 6335002-1 (Version None)
Quarter: 2009Q3

REPORT INFORMATION
  Report Type: 
  Country: None (occurrence: None)
  Receive Date: 20090831
  Receipt Date: 20090821
  Transmission Date: 20100115
  Serious: Yes (Hospitalization)
  Sender: FDA-Public Use
  Company Number: US-ALLERGAN-0911743US

PATIENT
  Sex: Male

DRUGS (8)
  1. BLINDED BRIMONIDINE 0.2%;TIMOLOL 0.5% SOL W/ BAK [Suspect]
     Indication: GLAUCOMA
     Dosage: 1 GTT, Q12H
     Route: 047
     Dates: end: 20090708
  2. BLINDED TIMOLOL MALEATE 0.5% SOL [Suspect]
     Indication: GLAUCOMA
     Dosage: 1 GTT, Q12H
     Route: 047
     Dates: end: 20090708
  3. BLINDED XALATAN                            /01297301/ [Suspect]
     Indication: GLAUCOMA
     Dosage: 1 GTT, Q12H
     Route: 047
     Dates: end: 20090708
  4. BLINDED BRIMONIDINE 0.2%;TIMOLOL 0.5% SOL W/ BAK [Suspect]
     Indication: OCULAR HYPERTENSION
  5. BLINDED TIMOLOL MALEATE 0.5% SOL [Suspect]
     Indication: OCULAR HYPERTENSION
  6. BLINDED XALATAN                            /01297301/ [Suspect]
     Indication: OCULAR HYPERTENSION
  7. XALATAN [Suspect]
     Indication: GLAUCOMA
     Dosage: 1 GTT, Q12H
     Route: 047
  8. XALATAN [Suspect]
     Indication: OCULAR HYPERTENSION

REACTIONS (2)
  - CARDIAC FAILURE [None]
  - CHRONIC OBSTRUCTIVE PULMONARY DISEASE [None]
